FAERS Safety Report 7384651-0 (Version None)
Quarter: 2011Q1

REPORT INFORMATION
  Report Type: 
  Country: None (occurrence: None)
  Receive Date: 20110330
  Receipt Date: 20100319
  Transmission Date: 20110831
  Serious: Yes (Death, Hospitalization, Other)
  Sender: FDA-Public Use
  Company Number: US-BAYER-2011-006012

PATIENT
  Sex: Male
  Weight: 68.027 kg

DRUGS (11)
  1. TRASYLOL [Suspect]
     Indication: PRODUCT USED FOR UNKNOWN INDICATION
     Dosage: UNK
     Dates: start: 20070101
  2. ACETYLSALICYLIC ACID SRT [Concomitant]
     Dosage: 81 MG, QD
  3. ATROPINE [Concomitant]
     Dosage: 3 DOSES
     Dates: start: 20070321
  4. DOPAMINE HCL [Concomitant]
     Dosage: UNK
     Route: 041
     Dates: start: 20070320
  5. BLOOD TRANSFUSION, AUXILIARY PRODUCTS [Concomitant]
     Dosage: 4 U, UNK
     Route: 042
     Dates: start: 20070309
  6. ULTRAM [Concomitant]
     Dosage: 50 MG, AS NEEDED
  7. EPINEPHRINE [Concomitant]
     Dosage: 3 DOSES
     Dates: start: 20070321
  8. LASIX [Concomitant]
     Dosage: 80 MG, BID
  9. METOPROLOL [Concomitant]
     Dosage: 50 MG, BID
  10. LIPITOR [Concomitant]
     Dosage: 20 MG, QD
  11. CIPRO [Concomitant]
     Indication: URINARY TRACT INFECTION
     Dosage: DOSE ADJUSTED DUE TO RENAL INSUFFICIENCY
     Dates: start: 20070311

REACTIONS (12)
  - FEAR [None]
  - INJURY [None]
  - STRESS [None]
  - RENAL FAILURE [None]
  - MULTI-ORGAN FAILURE [None]
  - RENAL INJURY [None]
  - UNEVALUABLE EVENT [None]
  - DEATH [None]
  - ANXIETY [None]
  - RENAL IMPAIRMENT [None]
  - EMOTIONAL DISTRESS [None]
  - PAIN [None]
